FAERS Safety Report 8102512-6 (Version None)
Quarter: 2011Q4

REPORT INFORMATION
  Report Type: 
  Country: None (occurrence: None)
  Receive Date: 20111222
  Receipt Date: 20110902
  Transmission Date: 20120403
  Serious: Yes (Hospitalization)
  Sender: FDA-Public Use
  Company Number: UTC-009960

PATIENT
  Age: 48 Year
  Sex: Female
  Weight: 70.45 kg

DRUGS (5)
  1. DIURETICS (DIURETICS) [Concomitant]
  2. TRACLEER [Concomitant]
  3. COUMADIN [Concomitant]
  4. REVATIO [Concomitant]
  5. TYVASO [Suspect]
     Indication: PULMONARY HYPERTENSION
     Dosage: 216 MCG (54 MCG, 4 IN 1 D), INHALATION
     Route: 055
     Dates: start: 20100602

REACTIONS (1)
  - CARDIAC FAILURE [None]
